FAERS Safety Report 4961026-2 (Version None)
Quarter: 2006Q1

REPORT INFORMATION
  Report Type: 
  Country: None (occurrence: None)
  Receive Date: 20060328
  Receipt Date: 20060320
  Transmission Date: 20060701
  Serious: Yes (Hospitalization)
  Sender: FDA-Public Use
  Company Number: GBWYE499922MAR06

PATIENT
  Sex: Male

DRUGS (2)
  1. EFFEXOR [Suspect]
     Indication: DEPRESSION
     Dosage: 37.5 MG 2X PER 1 DAY
     Dates: start: 20060302, end: 20060316
  2. ANTIBIOTICS (ANTIBIOTICS) [Concomitant]

REACTIONS (4)
  - BONE MARROW MYELOGRAM ABNORMAL [None]
  - CONDITION AGGRAVATED [None]
  - EXTRAPYRAMIDAL DISORDER [None]
  - PARKINSONISM [None]
